FAERS Safety Report 7364591-3 (Version None)
Quarter: 2011Q1

REPORT INFORMATION
  Report Type: 
  Country: None (occurrence: None)
  Receive Date: 20110321
  Receipt Date: 20110310
  Transmission Date: 20110831
  Serious: Yes (Hospitalization, Other)
  Sender: FDA-Public Use
  Company Number: PHHY2011GB16604

PATIENT
  Age: 36 Year
  Sex: Female

DRUGS (9)
  1. ETOPOSIDE [Suspect]
     Indication: OVARIAN GERM CELL CANCER
     Dosage: 100 MG/M2, UNK
  2. METHOTREXATE [Suspect]
     Indication: OVARIAN GERM CELL CANCER
  3. BLEOMYCIN SULFATE [Suspect]
     Indication: OVARIAN GERM CELL CANCER
  4. DACTINOMYCIN [Suspect]
     Indication: OVARIAN GERM CELL CANCER
  5. ONDANSETRON [Concomitant]
     Indication: VOMITING
  6. CYCLOPHOSPHAMIDE [Suspect]
     Indication: OVARIAN GERM CELL CANCER
  7. DEXAMETHASONE [Concomitant]
     Indication: VOMITING
     Dosage: UNK
  8. CISPLATIN [Suspect]
     Indication: OVARIAN GERM CELL CANCER
     Dosage: 20 MG/M2, UNK
  9. VINCRISTINE [Suspect]
     Indication: OVARIAN GERM CELL CANCER

REACTIONS (13)
  - BRAIN OEDEMA [None]
  - HYPOTENSION [None]
  - CENTRAL NERVOUS SYSTEM LESION [None]
  - NEUTROPENIA [None]
  - TUBERCULOSIS OF CENTRAL NERVOUS SYSTEM [None]
  - LOSS OF CONSCIOUSNESS [None]
  - NYSTAGMUS [None]
  - SEPSIS [None]
  - BLOOD HUMAN CHORIONIC GONADOTROPIN POSITIVE [None]
  - PYREXIA [None]
  - ENCEPHALITIS VIRAL [None]
  - HYPOKALAEMIA [None]
  - MENINGISM [None]
